FAERS Safety Report 7164628-0 (Version None)
Quarter: 2010Q4

REPORT INFORMATION
  Report Type: 
  Country: None (occurrence: None)
  Receive Date: 20101215
  Receipt Date: 20101213
  Transmission Date: 20110411
  Serious: Yes (Life-Threatening, Hospitalization)
  Sender: FDA-Public Use
  Company Number: BE-ROXANE LABORATORIES, INC.-2010-RO-01679RO

PATIENT
  Age: 49 Year
  Sex: Female

DRUGS (1)
  1. METHADONE [Suspect]
     Indication: DRUG WITHDRAWAL MAINTENANCE THERAPY

REACTIONS (4)
  - LOCKED-IN SYNDROME [None]
  - OVERDOSE [None]
  - RESPIRATORY FAILURE [None]
  - TOXIC ENCEPHALOPATHY [None]
